FAERS Safety Report 4769799-9 (Version None)
Quarter: 2005Q3

REPORT INFORMATION
  Report Type: 
  Country: None (occurrence: None)
  Receive Date: 20050907
  Receipt Date: 20050620
  Transmission Date: 20060218
  Serious: Yes (Other)
  Sender: FDA-Public Use
  Company Number: 2005091478

PATIENT
  Age: 63 Year
  Sex: Male
  Weight: 95.2554 kg

DRUGS (3)
  1. CAVERJECT [Suspect]
     Indication: ERECTILE DYSFUNCTION
     Dosage: 8 MCG  (8 MCG, AS NECESSARY),
     Dates: start: 20050619
  2. GLUCOTROL [Concomitant]
  3. ASPIRIN [Concomitant]

REACTIONS (2)
  - ERECTION INCREASED [None]
  - PENILE PAIN [None]
